FAERS Safety Report 10368237 (Version 1)
Quarter: 2014Q3

REPORT INFORMATION
  Report Type: Spontaneous
  Country: US (occurrence: US)
  Receive Date: 20140807
  Receipt Date: 20140807
  Transmission Date: 20150326
  Serious: No
  Sender: FDA-Public Use
  Company Number: US-ASTRAZENECA-2014SE54969

PATIENT
  Age: 80 Year
  Sex: Female

DRUGS (1)
  1. SYMBICORT [Suspect]
     Active Substance: BUDESONIDE\FORMOTEROL FUMARATE DIHYDRATE
     Indication: CHRONIC OBSTRUCTIVE PULMONARY DISEASE
     Dosage: 160/4.5 MCG, DAILY
     Route: 055
     Dates: start: 2014, end: 2014

REACTIONS (4)
  - Drug dispensing error [Unknown]
  - Cough [Unknown]
  - Drug dose omission [Unknown]
  - Intentional product misuse [Unknown]
